FAERS Safety Report 8166979-X (Version None)
Quarter: 2012Q1

REPORT INFORMATION
  Report Type: 
  Country: None (occurrence: None)
  Receive Date: 20120227
  Receipt Date: 20120220
  Transmission Date: 20120608
  Serious: Yes (Death)
  Sender: FDA-Public Use
  Company Number: JP-SANOFI-AVENTIS-2012SA010376

PATIENT
  Age: 85 Year
  Sex: Male

DRUGS (2)
  1. ALL OTHER THERAPEUTIC PRODUCTS [Suspect]
     Route: 065
  2. TAXOTERE [Suspect]
     Dosage: FORM: 2 VIALS
     Route: 042
     Dates: end: 20120208

REACTIONS (2)
  - PLATELET COUNT DECREASED [None]
  - GASTRIC HAEMORRHAGE [None]
